FAERS Safety Report 4776971-0 (Version None)
Quarter: 2005Q3

REPORT INFORMATION
  Report Type: 
  Country: None (occurrence: None)
  Receive Date: 20050921
  Receipt Date: 20050902
  Transmission Date: 20060218
  Serious: Yes (Other)
  Sender: FDA-Public Use
  Company Number: USA0507102993

PATIENT
  Age: 49 Year
  Sex: Female

DRUGS (5)
  1. CYMBALTA [Suspect]
     Indication: ANXIETY
     Dosage: 60 MG DAY
     Dates: start: 20050704, end: 20050715
  2. OXYCODONE HCL [Concomitant]
  3. GABATRIL (TIAGABINE HYDROCHLORIDE) [Concomitant]
  4. NEURONTIN [Concomitant]
  5. DIAZEPAM [Concomitant]

REACTIONS (16)
  - BACK INJURY [None]
  - BACTERIAL INFECTION [None]
  - BONE PAIN [None]
  - DIZZINESS [None]
  - HEAD INJURY [None]
  - HYPOAESTHESIA [None]
  - IMPAIRED DRIVING ABILITY [None]
  - INJURY [None]
  - LIMB INJURY [None]
  - LOSS OF CONSCIOUSNESS [None]
  - MENTAL DISORDER [None]
  - MUSCLE INJURY [None]
  - MYALGIA [None]
  - OEDEMA PERIPHERAL [None]
  - PAIN [None]
  - PYREXIA [None]
